FAERS Safety Report 25002646 (Version 2)
Quarter: 2025Q1

REPORT INFORMATION
  Report Type: Report from Study
  Country: US (occurrence: US)
  Receive Date: 20250224
  Receipt Date: 20250319
  Transmission Date: 20250409
  Serious: No
  Sender: MERCK SHARP & DOHME LLC
  Company Number: US-009507513-2256547

PATIENT
  Age: 82 Year
  Sex: Female
  Weight: 72.575 kg

DRUGS (33)
  1. WINREVAIR [Suspect]
     Active Substance: SOTATERCEPT-CSRK
     Indication: Pulmonary arterial hypertension
     Route: 058
     Dates: start: 20241231
  2. WINREVAIR [Suspect]
     Active Substance: SOTATERCEPT-CSRK
  3. WINREVAIR [Suspect]
     Active Substance: SOTATERCEPT-CSRK
  4. WINREVAIR [Suspect]
     Active Substance: SOTATERCEPT-CSRK
  5. UPTRAVI [Concomitant]
     Active Substance: SELEXIPAG
  6. OPSUMIT [Concomitant]
     Active Substance: MACITENTAN
  7. ADEMPAS [Concomitant]
     Active Substance: RIOCIGUAT
  8. AMOXICILLIN [Concomitant]
     Active Substance: AMOXICILLIN
  9. METOPROLOL [Concomitant]
     Active Substance: METOPROLOL
  10. ASPIRIN [Concomitant]
     Active Substance: ASPIRIN
  11. POTTASIUM [Concomitant]
  12. FUROSEMIDE [Concomitant]
     Active Substance: FUROSEMIDE
  13. PANTOPRAZOLE [Concomitant]
     Active Substance: PANTOPRAZOLE
  14. ACYCLOVIR [Concomitant]
     Active Substance: ACYCLOVIR
  15. CITALOPRAM [Concomitant]
     Active Substance: CITALOPRAM
  16. ALLEGRA [Concomitant]
     Active Substance: FEXOFENADINE HYDROCHLORIDE
  17. ALBUTEROL SULFATE [Concomitant]
     Active Substance: ALBUTEROL SULFATE
  18. FLUTICASONE PROPIONATE [Concomitant]
     Active Substance: FLUTICASONE PROPIONATE
  19. VITAMIN D3 [Concomitant]
     Active Substance: CHOLECALCIFEROL
  20. WARFARIN [Concomitant]
     Active Substance: WARFARIN
  21. TRACLEER [Concomitant]
     Active Substance: BOSENTAN
  22. MEDROL [Concomitant]
     Active Substance: METHYLPREDNISOLONE
  23. DOXYCYCLINE HYCLATE [Concomitant]
     Active Substance: DOXYCYCLINE HYCLATE
  24. CIALIS [Concomitant]
     Active Substance: TADALAFIL
  25. BIOTIN [Concomitant]
     Active Substance: BIOTIN
  26. TRAMADOL HCL [Concomitant]
     Active Substance: TRAMADOL HYDROCHLORIDE
  27. BENZONATATE [Concomitant]
     Active Substance: BENZONATATE
  28. CALCIUM [Concomitant]
     Active Substance: CALCIUM
  29. OXYGEN [Concomitant]
     Active Substance: OXYGEN
  30. PREDNISONE [Concomitant]
     Active Substance: PREDNISONE
  31. LEVOFLOXACIN [Concomitant]
     Active Substance: LEVOFLOXACIN
  32. DIPHENHYDRAMINE HYDROCHLORIDE [Concomitant]
     Active Substance: DIPHENHYDRAMINE HYDROCHLORIDE
  33. ADVAIR HFA [Concomitant]
     Active Substance: FLUTICASONE PROPIONATE\SALMETEROL XINAFOATE

REACTIONS (5)
  - Ear disorder [Not Recovered/Not Resolved]
  - Inappropriate schedule of product administration [Unknown]
  - Product dose omission issue [Unknown]
  - Suspected product contamination [Unknown]
  - Product preparation issue [Unknown]

NARRATIVE: CASE EVENT DATE: 20250201
